FAERS Safety Report 7357510-7 (Version None)
Quarter: 2011Q1

REPORT INFORMATION
  Report Type: 
  Country: None (occurrence: None)
  Receive Date: 20110309
  Receipt Date: 20110221
  Transmission Date: 20110831
  Serious: Yes (Hospitalization)
  Sender: FDA-Public Use
  Company Number: 2011MA001601

PATIENT
  Age: 9 Year
  Sex: Female

DRUGS (1)
  1. PHENYTOIN [Suspect]
     Indication: BRAIN ABSCESS
     Dosage: 100 MG;TID;PO
     Route: 048

REACTIONS (12)
  - BLISTER [None]
  - NAUSEA [None]
  - TOXIC EPIDERMAL NECROLYSIS [None]
  - TOXICITY TO VARIOUS AGENTS [None]
  - PYREXIA [None]
  - VOMITING [None]
  - BLOOD ALBUMIN DECREASED [None]
  - MALAISE [None]
  - ERYTHEMA [None]
  - STEVENS-JOHNSON SYNDROME [None]
  - PROTEIN TOTAL DECREASED [None]
  - POST INFLAMMATORY PIGMENTATION CHANGE [None]
